FAERS Safety Report 8601579-6 (Version None)
Quarter: 2012Q3

REPORT INFORMATION
  Report Type: 
  Country: None (occurrence: None)
  Receive Date: 20120817
  Receipt Date: 20120216
  Transmission Date: 20120928
  Serious: Yes (Other)
  Sender: FDA-Public Use
  Company Number: US-BRISTOL-MYERS SQUIBB COMPANY-16274896

PATIENT
  Age: 6 Decade
  Sex: Female

DRUGS (1)
  1. SPRYCEL [Suspect]
     Indication: ACUTE MYELOID LEUKAEMIA
     Dosage: USED OFF LABEL

REACTIONS (4)
  - COLITIS [None]
  - PULMONARY ARTERIAL HYPERTENSION [None]
  - PLEURAL EFFUSION [None]
  - OFF LABEL USE [None]
